FAERS Safety Report 13593494 (Version 2)
Quarter: 2017Q2

REPORT INFORMATION
  Report Type: Spontaneous
  Country: IT (occurrence: IT)
  Receive Date: 20170530
  Receipt Date: 20170608
  Transmission Date: 20170830
  Serious: Yes (Hospitalization)
  Sender: FDA-Public Use
  Company Number: IT-TEVA-773467ACC

PATIENT
  Age: 46 Year
  Sex: Male
  Weight: 68 kg

DRUGS (5)
  1. SOLDESAM [Concomitant]
     Active Substance: DEXAMETHASONE
     Dosage: 8/2 MG/ML
     Dates: start: 20170515, end: 20170515
  2. CAPECITABINA ACCORD [Concomitant]
     Active Substance: CAPECITABINE
     Dates: start: 20170515
  3. ALOXI [Concomitant]
     Active Substance: PALONOSETRON HYDROCHLORIDE
     Dates: start: 20170515, end: 20170515
  4. ZANTAC [Concomitant]
     Active Substance: RANITIDINE HYDROCHLORIDE
     Dosage: 50/5 MG/ML
     Dates: start: 20170515, end: 20170515
  5. OXALIPLATINO AUROBINDO 5 MG/ML CONCENTRATE FOR SOLUTION FOR INFUSION [Suspect]
     Active Substance: OXALIPLATIN
     Indication: SMALL INTESTINE CARCINOMA
     Route: 042
     Dates: start: 20161229, end: 20170515

REACTIONS (6)
  - Dysphagia [Recovered/Resolved]
  - Formication [Recovered/Resolved]
  - Pain in extremity [Recovered/Resolved]
  - Tremor [Recovered/Resolved]
  - Hyperpyrexia [Recovered/Resolved]
  - Back pain [Recovered/Resolved]

NARRATIVE: CASE EVENT DATE: 20170515
